FAERS Safety Report 8186790-3 (Version None)
Quarter: 2012Q1

REPORT INFORMATION
  Report Type: 
  Country: None (occurrence: None)
  Receive Date: 20120306
  Receipt Date: 20120306
  Transmission Date: 20120608
  Serious: Yes (Other)
  Sender: FDA-Public Use
  Company Number: None

PATIENT
  Age: 19 Year
  Sex: Female
  Weight: 86.182 kg

DRUGS (1)
  1. ETHINYL ESTRADIOL TAB [Suspect]
     Indication: MENORRHAGIA
     Dosage: 1 PILL
     Route: 048
     Dates: start: 20120102, end: 20120305

REACTIONS (5)
  - POOR QUALITY DRUG ADMINISTERED [None]
  - MENORRHAGIA [None]
  - HEADACHE [None]
  - ABDOMINAL PAIN [None]
  - MEDICATION ERROR [None]
